FAERS Safety Report 10566454 (Version 2)
Quarter: 2014Q4

REPORT INFORMATION
  Report Type: Spontaneous
  Country: JP (occurrence: JP)
  Receive Date: 20141105
  Receipt Date: 20141112
  Transmission Date: 20150529
  Serious: Yes (Other)
  Sender: FDA-Public Use
  Company Number: JP-VERTEX PHARMACEUTICALS-2014-004453

PATIENT
  Age: 53 Year
  Sex: Male

DRUGS (1)
  1. TELAVIC [Suspect]
     Active Substance: TELAPREVIR
     Indication: PRODUCT USED FOR UNKNOWN INDICATION
     Dosage: UNK
     Route: 065

REACTIONS (1)
  - Pharyngeal cancer [Recovering/Resolving]

NARRATIVE: CASE EVENT DATE: 20130116
